FAERS Safety Report 10243132 (Version 1)
Quarter: 2014Q2

REPORT INFORMATION
  Report Type: Spontaneous
  Country: US (occurrence: None)
  Receive Date: 20140613
  Receipt Date: 20140613
  Transmission Date: 20141212
  Serious: Yes (Hospitalization)
  Sender: FDA-Public Use
  Company Number: 54973 AE 1538

PATIENT
  Age: 12 Year
  Sex: Female

DRUGS (2)
  1. HYLAND^S CALMS FORTE [Suspect]
     Indication: BODY TEMPERATURE INCREASED
  2. HYLAND^S CALMS FORTE [Suspect]
     Indication: TENSION

REACTIONS (2)
  - Intentional product misuse [None]
  - Exposure via ingestion [None]
